FAERS Safety Report 11595239 (Version 15)
Quarter: 2016Q3

REPORT INFORMATION
  Report Type: Report from Study
  Country: CA (occurrence: CA)
  Receive Date: 20151006
  Receipt Date: 20160930
  Transmission Date: 20161109
  Serious: Yes (Other)
  Sender: FDA-Public Use
  Company Number: CA-ROCHE-1466793

PATIENT
  Age: 62 Year
  Sex: Female
  Weight: 92 kg

DRUGS (9)
  1. PREVACID [Concomitant]
     Active Substance: LANSOPRAZOLE
  2. NAPROXEN. [Concomitant]
     Active Substance: NAPROXEN
  3. ACTEMRA [Suspect]
     Active Substance: TOCILIZUMAB
     Route: 042
     Dates: start: 20160209
  4. OMEGA FISH OIL [Concomitant]
     Active Substance: FISH OIL\OMEGA-3 FATTY ACIDS
  5. PREDNISONE. [Concomitant]
     Active Substance: PREDNISONE
  6. TRAMCET [Concomitant]
     Active Substance: ACETAMINOPHEN\TRAMADOL
  7. CURCUMIN [Concomitant]
     Active Substance: CURCUMIN
  8. ACTEMRA [Suspect]
     Active Substance: TOCILIZUMAB
     Indication: RHEUMATOID ARTHRITIS
     Route: 042
     Dates: start: 20140730
  9. ATENOLOL. [Concomitant]
     Active Substance: ATENOLOL
     Indication: SUPRAVENTRICULAR TACHYCARDIA

REACTIONS (20)
  - Glomerular filtration rate decreased [Unknown]
  - H1N1 influenza [Recovering/Resolving]
  - Dysphonia [Not Recovered/Not Resolved]
  - Blood pressure increased [Unknown]
  - Formication [Recovered/Resolved]
  - Cough [Unknown]
  - Tooth disorder [Unknown]
  - Nasopharyngitis [Recovering/Resolving]
  - Limb injury [Not Recovered/Not Resolved]
  - Lower respiratory tract infection [Not Recovered/Not Resolved]
  - Rheumatoid arthritis [Not Recovered/Not Resolved]
  - Muscle spasms [Not Recovered/Not Resolved]
  - Blood creatinine increased [Unknown]
  - Weight increased [Not Recovered/Not Resolved]
  - Infusion related reaction [Unknown]
  - Scratch [Not Recovered/Not Resolved]
  - Abdominal pain [Not Recovered/Not Resolved]
  - Animal scratch [Not Recovered/Not Resolved]
  - Serum ferritin decreased [Unknown]
  - Vulvovaginal mycotic infection [Unknown]

NARRATIVE: CASE EVENT DATE: 20140827
